FAERS Safety Report 13825507 (Version 1)
Quarter: 2017Q3

REPORT INFORMATION
  Report Type: Report from Study
  Country: CA (occurrence: CA)
  Receive Date: 20170802
  Receipt Date: 20170802
  Transmission Date: 20171127
  Serious: Yes (Hospitalization)
  Sender: FDA-Public Use
  Company Number: CA-EISAI MEDICAL RESEARCH-EC-2017-026820

PATIENT
  Sex: Male

DRUGS (4)
  1. LENVIMA [Suspect]
     Active Substance: LENVATINIB
     Indication: THYROID CANCER METASTATIC
     Route: 048
     Dates: start: 20170207, end: 20170412
  2. LENVIMA [Suspect]
     Active Substance: LENVATINIB
     Route: 048
     Dates: start: 2017, end: 201706
  3. LENVIMA [Suspect]
     Active Substance: LENVATINIB
     Route: 048
     Dates: start: 20170426, end: 201705
  4. METHADONE [Concomitant]
     Active Substance: METHADONE HYDROCHLORIDE

REACTIONS (15)
  - Decreased appetite [Unknown]
  - Urine output decreased [Unknown]
  - Localised infection [Recovered/Resolved]
  - Skin disorder [Unknown]
  - Pollakiuria [Unknown]
  - Wound infection [Not Recovered/Not Resolved]
  - Dry mouth [Unknown]
  - Dry skin [Unknown]
  - Muscle spasms [Unknown]
  - Wound [Unknown]
  - Haematochezia [Unknown]
  - Hypertension [Unknown]
  - Dyschezia [Unknown]
  - Impaired healing [Unknown]
  - Vocal cord dysfunction [Unknown]

NARRATIVE: CASE EVENT DATE: 2017
